FAERS Safety Report 19197169 (Version 1)
Quarter: 2021Q2

REPORT INFORMATION
  Report Type: Report from Study
  Country: BR (occurrence: BR)
  Receive Date: 20210430
  Receipt Date: 20210430
  Transmission Date: 20210717
  Serious: Yes (Other)
  Sender: FDA-Public Use
  Company Number: BR-UCBSA-2021011608

PATIENT
  Age: 49 Year
  Sex: Female
  Weight: 45 kg

DRUGS (8)
  1. ROSUVASTATINA [ROSUVASTATIN] [Concomitant]
     Active Substance: ROSUVASTATIN
     Indication: BLOOD CHOLESTEROL
     Dosage: 20 MILLIGRAM
     Route: 048
  2. PREGABALINA [Concomitant]
     Active Substance: PREGABALIN
     Indication: DEPRESSION
     Dosage: 150 MG ? 2 TABLETS DAILY
     Route: 048
  3. CERTOLIZUMAB PEGOL RA [Suspect]
     Active Substance: CERTOLIZUMAB PEGOL
     Indication: RHEUMATOID ARTHRITIS
     Dosage: 400 MILLIGRAM, EV 15 DAYS
     Route: 058
     Dates: start: 202008, end: 202008
  4. ALPRAZOLAM. [Concomitant]
     Active Substance: ALPRAZOLAM
     Indication: DEPRESSION
     Dosage: 2 MILLIGRAM, ONCE DAILY (QD)
     Route: 048
  5. CIMETIDINA [CIMETIDINE] [Concomitant]
     Indication: PRODUCT USED FOR UNKNOWN INDICATION
     Dosage: 20 MILLIGRAM ? TABLETS DAILY
     Route: 048
  6. AMITRIPTYLINE HYDROCHLORIDE. [Concomitant]
     Active Substance: AMITRIPTYLINE HYDROCHLORIDE
     Indication: DEPRESSION
     Dosage: 25 MILLIGRAM, 2 TABLETS DAILY
     Route: 048
     Dates: start: 2019
  7. CERTOLIZUMAB PEGOL RA [Suspect]
     Active Substance: CERTOLIZUMAB PEGOL
     Dosage: 200 MILLIGRAM, EV 15 DAYS
     Route: 058
  8. FONT D [Concomitant]
     Indication: RHEUMATOID ARTHRITIS
     Dosage: UNK UNK, ONCE DAILY (QD)
     Route: 048

REACTIONS (5)
  - Weight decreased [Unknown]
  - Product availability issue [Unknown]
  - Bacterial infection [Not Recovered/Not Resolved]
  - Diarrhoea [Unknown]
  - Therapy interrupted [Unknown]

NARRATIVE: CASE EVENT DATE: 202101
